FAERS Safety Report 5066875-0 (Version None)
Quarter: 2006Q3

REPORT INFORMATION
  Report Type: 
  Country: None (occurrence: None)
  Receive Date: 20060726
  Receipt Date: 20060713
  Transmission Date: 20061208
  Serious: Yes (Death, Other)
  Sender: FDA-Public Use
  Company Number: 2006086166

PATIENT
  Age: 68 Year
  Sex: Male

DRUGS (6)
  1. FLUCONAZOLE [Suspect]
     Indication: AGEUSIA
     Dosage: 50 MG
  2. FLUCONAZOLE [Suspect]
     Indication: PARAESTHESIA ORAL
     Dosage: 50 MG
  3. MESTINON [Suspect]
     Indication: GAIT DISTURBANCE
  4. MESTINON [Suspect]
     Indication: PAIN IN EXTREMITY
  5. COTAREG (HYDROCHLOROTHIAZIDE, VALSARTAN) [Concomitant]
  6. DILTIAZEM HYDROCHLORIDE [Concomitant]

REACTIONS (1)
  - DRUG INTERACTION [None]
